FAERS Safety Report 11204894 (Version 1)
Quarter: 2015Q2

REPORT INFORMATION
  Report Type: Spontaneous
  Country: US (occurrence: None)
  Receive Date: 20150618
  Receipt Date: 20150618
  Transmission Date: 20150821
  Serious: No
  Sender: FDA-Public Use
  Company Number: None

PATIENT
  Age: 73 Year
  Sex: Male
  Weight: 94.9 kg

DRUGS (1)
  1. ALDESLEUKIN [Suspect]
     Active Substance: ALDESLEUKIN
     Indication: MALIGNANT MELANOMA
     Dosage: 66300000 UNITS
     Route: 042
     Dates: start: 20091201, end: 20091205

REACTIONS (4)
  - Wheezing [None]
  - Thrombocytopenia [None]
  - Acute kidney injury [None]
  - Dyspnoea [None]

NARRATIVE: CASE EVENT DATE: 20091204
